FAERS Safety Report 8166444-X (Version None)
Quarter: 2012Q1

REPORT INFORMATION
  Report Type: 
  Country: None (occurrence: None)
  Receive Date: 20120227
  Receipt Date: 20110906
  Transmission Date: 20120608
  Serious: No
  Sender: FDA-Public Use
  Company Number: US-MYLANLABS-2011S1016454

PATIENT
  Age: 25 Year
  Sex: Female
  Weight: 52.16 kg

DRUGS (2)
  1. AMNESTEEM [Suspect]
  2. AMNESTEEM [Suspect]
     Indication: ACNE

REACTIONS (2)
  - ALANINE AMINOTRANSFERASE INCREASED [None]
  - ASPARTATE AMINOTRANSFERASE INCREASED [None]
